FAERS Safety Report 19923518 (Version 3)
Quarter: 2021Q4

REPORT INFORMATION
  Report Type: Spontaneous
  Country: GB (occurrence: GB)
  Receive Date: 20211006
  Receipt Date: 20211014
  Transmission Date: 20220303
  Serious: Yes (Hospitalization)
  Sender: FDA-Public Use
  Company Number: GB-ABBVIE-21K-167-4082935-00

PATIENT
  Age: 6 Year
  Sex: Male
  Weight: 29 kg

DRUGS (8)
  1. VALPROIC ACID [Suspect]
     Active Substance: VALPROIC ACID
     Indication: Product used for unknown indication
     Route: 065
     Dates: start: 2020, end: 2020
  2. VALPROIC ACID [Suspect]
     Active Substance: VALPROIC ACID
     Dosage: REDUCTION OF THE DOSE STARTED
     Route: 065
     Dates: start: 202009, end: 202011
  3. VALPROIC ACID [Suspect]
     Active Substance: VALPROIC ACID
     Route: 065
     Dates: start: 202011, end: 202107
  4. VALPROIC ACID [Suspect]
     Active Substance: VALPROIC ACID
     Dosage: 16 MG/KG/DAY, 240 MILLIGRAM (DOSE REDUCED FURTHER)
     Route: 065
     Dates: start: 202107
  5. CANNABIDIOL [Suspect]
     Active Substance: CANNABIDIOL
     Indication: Lennox-Gastaut syndrome
     Dosage: 7.14MG/KG/DAY, 150 MILLIGRAM, BID
     Route: 048
     Dates: start: 20200422
  6. CANNABIDIOL [Suspect]
     Active Substance: CANNABIDIOL
     Dosage: 18 MG/KG
     Route: 048
     Dates: start: 20210420
  7. CLOBAZAM [Concomitant]
     Active Substance: CLOBAZAM
     Indication: Product used for unknown indication
  8. ZONISAMIDE [Concomitant]
     Active Substance: ZONISAMIDE
     Indication: Product used for unknown indication

REACTIONS (3)
  - COVID-19 [Unknown]
  - Platelet count decreased [Recovered/Resolved]
  - Platelet count decreased [Not Recovered/Not Resolved]

NARRATIVE: CASE EVENT DATE: 20200921
